FAERS Safety Report 5051839-3 (Version None)
Quarter: 2006Q3

REPORT INFORMATION
  Report Type: 
  Country: None (occurrence: None)
  Receive Date: 20060712
  Receipt Date: 20060712
  Transmission Date: 20061208
  Serious: Yes (Hospitalization)
  Sender: FDA-Public Use
  Company Number: None

PATIENT
  Sex: Male
  Weight: 102.5129 kg

DRUGS (21)
  1. PROCRIT [Suspect]
     Indication: ANAEMIA
     Dosage: 80000 IU SQ WKLY
     Route: 058
     Dates: start: 20060417, end: 20060619
  2. CYTOXAN [Suspect]
     Indication: BREAST CANCER METASTATIC
     Dosage: 500 MG/M2 IV Q 3 WKS
     Route: 042
     Dates: start: 20060405, end: 20060612
  3. ADRIAMYCIN PFS [Suspect]
     Indication: BREAST CANCER METASTATIC
     Dosage: 50 MG /M2 IV Q3 WKS
     Route: 042
     Dates: start: 20060405, end: 20060612
  4. ABRAXANE [Suspect]
     Indication: BREAST CANCER METASTATIC
     Dosage: 175 MG/M2 IV Q3 WKS
     Route: 042
     Dates: start: 20060407, end: 20060615
  5. DILAUDID [Concomitant]
  6. BETA EXROTINE [Concomitant]
  7. VIT B12 [Concomitant]
  8. MEGACE [Concomitant]
  9. ZOFRAN [Concomitant]
  10. COLACE [Concomitant]
  11. FEMARA [Concomitant]
  12. ALLOPURINOL [Concomitant]
  13. ACETAMINOPHEN [Concomitant]
  14. ASPIRIN [Concomitant]
  15. IBUPROFEN [Concomitant]
  16. GEMFIBROZIL [Concomitant]
  17. VERAPAMIL [Concomitant]
  18. NEXIUM [Concomitant]
  19. LEVAQUIN [Concomitant]
  20. AMBIEN [Concomitant]
  21. LORTAB [Concomitant]

REACTIONS (15)
  - ANAEMIA [None]
  - DEHYDRATION [None]
  - DYSPNOEA [None]
  - GASTROOESOPHAGEAL REFLUX DISEASE [None]
  - HYPONATRAEMIA [None]
  - HYPOTENSION [None]
  - HYPOVOLAEMIA [None]
  - LEUKOCYTOSIS [None]
  - MUSCULOSKELETAL CHEST PAIN [None]
  - OBESITY [None]
  - PAIN [None]
  - PLEURITIC PAIN [None]
  - PNEUMONIA [None]
  - PYREXIA [None]
  - RENAL FAILURE ACUTE [None]
